FAERS Safety Report 8354527-0 (Version None)
Quarter: 2012Q2

REPORT INFORMATION
  Report Type: 
  Country: None (occurrence: None)
  Receive Date: 20120511
  Receipt Date: 20120503
  Transmission Date: 20120825
  Serious: Yes (Other)
  Sender: FDA-Public Use
  Company Number: US-JNJFOC-20120506756

PATIENT
  Sex: Male

DRUGS (2)
  1. INVEGA SUSTENNA [Suspect]
     Dosage: DAY 1 DOSE
     Route: 030
     Dates: start: 20120101, end: 20120101
  2. INVEGA SUSTENNA [Suspect]
     Indication: PRODUCT USED FOR UNKNOWN INDICATION
     Dosage: DAY 8 DOSE
     Route: 030
     Dates: start: 20120101, end: 20120101

REACTIONS (2)
  - PRODUCT QUALITY ISSUE [None]
  - PSYCHOTIC DISORDER [None]
